FAERS Safety Report 8398857-5 (Version None)
Quarter: 2012Q1

REPORT INFORMATION
  Report Type: 
  Country: None (occurrence: None)
  Receive Date: 20120323
  Receipt Date: 20111123
  Transmission Date: 20120608
  Serious: Yes (Other)
  Sender: FDA-Public Use
  Company Number: 163-21880-11113394

PATIENT
  Age: 50 Year
  Sex: Male

DRUGS (8)
  1. ALLOPURINOL [Concomitant]
  2. ASPIRIN [Concomitant]
  3. NEXIUM [Concomitant]
  4. LEVOFLOXAN (LEVOFLOXACIN) [Concomitant]
  5. REVLIMID [Suspect]
     Indication: MULTIPLE MYELOMA
     Dosage: 10 MG, FOR 28 DAYS, PO ; 15 MG, X 28 DAYS, PO
     Route: 048
     Dates: start: 20111101
  6. REVLIMID [Suspect]
     Indication: MULTIPLE MYELOMA
     Dosage: 10 MG, FOR 28 DAYS, PO ; 15 MG, X 28 DAYS, PO
     Route: 048
     Dates: start: 20111001
  7. ACYCLOVIR [Concomitant]
  8. DAPSONE [Concomitant]

REACTIONS (2)
  - FULL BLOOD COUNT ABNORMAL [None]
  - LYMPHADENOPATHY [None]
